FAERS Safety Report 21400835 (Version 3)
Quarter: 2023Q1

REPORT INFORMATION
  Report Type: Spontaneous
  Country: CL (occurrence: None)
  Receive Date: 20221003
  Receipt Date: 20230109
  Transmission Date: 20230418
  Serious: Yes (Hospitalization, Other)
  Sender: FDA-Public Use
  Company Number: CL-ROCHE-3189446

PATIENT
  Age: 51 Year
  Sex: Female

DRUGS (13)
  1. MABTHERA [Suspect]
     Active Substance: RITUXIMAB
     Indication: Diffuse large B-cell lymphoma
     Dosage: R-CHOP
     Route: 065
     Dates: start: 20210613, end: 20211120
  2. MABTHERA [Suspect]
     Active Substance: RITUXIMAB
     Indication: Non-Hodgkin^s lymphoma
     Dosage: R-ICE
     Route: 065
     Dates: start: 20220511, end: 20220811
  3. MABTHERA [Suspect]
     Active Substance: RITUXIMAB
     Dosage: R-DHAP
     Route: 065
     Dates: start: 20220824, end: 20220825
  4. CYCLOPHOSPHAMIDE [Concomitant]
     Active Substance: CYCLOPHOSPHAMIDE
     Indication: Diffuse large B-cell lymphoma
     Dosage: DOSE AND FREQUENCY WERE NOT REPORTED
     Dates: start: 20210613, end: 20211120
  5. DOXORUBICIN HYDROCHLORIDE [Concomitant]
     Active Substance: DOXORUBICIN HYDROCHLORIDE
     Indication: Diffuse large B-cell lymphoma
     Dosage: DOSE AND FREQUENCY WERE NOT REPORTED
     Dates: start: 20210613, end: 20211120
  6. VINCRISTINE SULFATE [Concomitant]
     Active Substance: VINCRISTINE SULFATE
     Indication: Diffuse large B-cell lymphoma
     Dosage: DOSE AND FREQUENCY WERE NOT REPORTED
     Dates: start: 20210613, end: 20211120
  7. PREDNISONE [Concomitant]
     Active Substance: PREDNISONE
     Indication: Diffuse large B-cell lymphoma
     Dosage: DOSE AND FREQUENCY WERE NOT REPORTED
     Dates: start: 20210613, end: 20211120
  8. IFOSFAMIDE [Concomitant]
     Active Substance: IFOSFAMIDE
     Indication: Diffuse large B-cell lymphoma
     Dosage: DOSE AND FREQUENCY WERE NOT REPORTED
     Dates: start: 20220511, end: 20220811
  9. CARBOPLATIN [Concomitant]
     Active Substance: CARBOPLATIN
     Indication: Diffuse large B-cell lymphoma
     Dosage: DOSE AND FREQUENCY WERE NOT REPORTED
     Dates: start: 20220511, end: 20220811
  10. ETOPOSIDE PHOSPHATE [Concomitant]
     Active Substance: ETOPOSIDE PHOSPHATE
     Indication: Diffuse large B-cell lymphoma
     Dosage: DOSE AND FREQUENCY WERE NOT REPORTED
     Dates: start: 20220511, end: 20220811
  11. DEXAMETHASONE [Concomitant]
     Active Substance: DEXAMETHASONE
     Indication: Diffuse large B-cell lymphoma
     Dosage: DOSE AND FREQUENCY WERE NOT REPORTED
     Dates: start: 20220824, end: 20220825
  12. CYTARABINE [Concomitant]
     Active Substance: CYTARABINE
     Indication: Diffuse large B-cell lymphoma
     Dosage: DOSE AND FREQUENCY WERE NOT REPORTED
     Dates: start: 20220824, end: 20220825
  13. CISPLATIN [Concomitant]
     Active Substance: CISPLATIN
     Indication: Diffuse large B-cell lymphoma
     Dosage: DOSE AND FREQUENCY WERE NOT REPORTED
     Dates: start: 20220824, end: 20220825

REACTIONS (23)
  - Disease progression [Unknown]
  - Pollakiuria [Unknown]
  - Rectal tenesmus [Unknown]
  - Pelvic pain [Unknown]
  - Ovarian neoplasm [Unknown]
  - Ascites [Unknown]
  - Metastases to peritoneum [Unknown]
  - Hydronephrosis [Unknown]
  - Lymphoproliferative disorder [Unknown]
  - Postrenal failure [Recovered/Resolved]
  - Bone marrow failure [Unknown]
  - Positron emission tomogram abnormal [Unknown]
  - Abdominal pain [Unknown]
  - Kidney enlargement [Unknown]
  - Hydrosalpinx [Unknown]
  - Cervix disorder [Unknown]
  - Scan abnormal [Unknown]
  - Pancreatic cyst [Unknown]
  - Adnexa uteri mass [Unknown]
  - Endometrial thickening [Unknown]
  - Muscle spasms [Not Recovered/Not Resolved]
  - Perinephritis [Unknown]
  - Lymphadenopathy [Unknown]

NARRATIVE: CASE EVENT DATE: 20220423
